FAERS Safety Report 6424957-2 (Version None)
Quarter: 2009Q4

REPORT INFORMATION
  Report Type: 
  Country: None (occurrence: None)
  Receive Date: 20091103
  Receipt Date: 20091029
  Transmission Date: 20100525
  Serious: Yes (Hospitalization)
  Sender: FDA-Public Use
  Company Number: US-ELI_LILLY_AND_COMPANY-US200908002344

PATIENT
  Sex: Female
  Weight: 107.94 kg

DRUGS (5)
  1. BYETTA [Suspect]
     Indication: TYPE 2 DIABETES MELLITUS
     Dosage: 5 UG, 2/D
     Dates: start: 20080225, end: 20080319
  2. BYETTA [Suspect]
     Dosage: 10 UG, 2/D
     Dates: start: 20080319, end: 20080416
  3. HUMALOG [Concomitant]
     Indication: TYPE 2 DIABETES MELLITUS
  4. DIOVAN HCT [Concomitant]
     Indication: BLOOD PRESSURE
     Dates: start: 20080130
  5. COREG [Concomitant]
     Indication: BLOOD PRESSURE
     Dosage: 6.25 MG, 2/D
     Dates: start: 20080130

REACTIONS (2)
  - OFF LABEL USE [None]
  - PANCREATITIS [None]
